FAERS Safety Report 6433984-0 (Version None)
Quarter: 2009Q4

REPORT INFORMATION
  Report Type: 
  Country: None (occurrence: None)
  Receive Date: 20091109
  Receipt Date: 20091109
  Transmission Date: 20100525
  Serious: Yes (Disabling)
  Sender: FDA-Public Use
  Company Number: None

PATIENT
  Sex: Female
  Weight: 86.1834 kg

DRUGS (1)
  1. LISINOPRIL AND HYDROCHLOROTHIAZIDE [Suspect]
     Indication: HYPERTENSION
     Dosage: 10/12.5M 1/DAILY
     Dates: start: 20061101

REACTIONS (3)
  - GINGIVAL ERYTHEMA [None]
  - GINGIVAL INJURY [None]
  - GINGIVAL PAIN [None]
